FAERS Safety Report 13171873 (Version 4)
Quarter: 2021Q4

REPORT INFORMATION
  Report Type: Spontaneous
  Country: FR (occurrence: FR)
  Receive Date: 20170131
  Receipt Date: 20211220
  Transmission Date: 20220303
  Serious: Yes (Hospitalization, Congenital Anomaly, Other)
  Sender: FDA-Public Use
  Company Number: FR-ABBVIE-17P-056-1858819-00

PATIENT
  Sex: Male

DRUGS (3)
  1. VALPROATE SODIUM [Suspect]
     Active Substance: VALPROATE SODIUM
     Indication: Maternal exposure timing unspecified
     Route: 064
  2. VALPROATE SODIUM [Suspect]
     Active Substance: VALPROATE SODIUM
     Route: 064
  3. FOLIC ACID [Concomitant]
     Active Substance: FOLIC ACID
     Indication: Maternal exposure timing unspecified
     Route: 064

REACTIONS (29)
  - Foetal distress syndrome [Unknown]
  - Language disorder [Unknown]
  - Psychomotor retardation [Unknown]
  - Dyspraxia [Unknown]
  - Attention deficit hyperactivity disorder [Unknown]
  - Hyperthermia [Unknown]
  - Ear, nose and throat disorder [Unknown]
  - Stereotypy [Unknown]
  - Streptococcal infection [Unknown]
  - Incontinence [Unknown]
  - Balance disorder [Unknown]
  - Coordination abnormal [Unknown]
  - Cryptorchism [Unknown]
  - Communication disorder [Unknown]
  - Otitis media acute [Unknown]
  - Hypoglycaemia neonatal [Unknown]
  - Beta haemolytic streptococcal infection [Unknown]
  - Apnoea [Unknown]
  - Congenital torticollis [Unknown]
  - Congenital genital malformation [Recovered/Resolved]
  - Developmental delay [Unknown]
  - Plagiocephaly [Recovered/Resolved with Sequelae]
  - Learning disorder [Unknown]
  - Enuresis [Unknown]
  - Limb malformation [Unknown]
  - Hypotonia [Unknown]
  - Anxiety [Unknown]
  - Dysmorphism [Unknown]
  - Foetal exposure during pregnancy [Unknown]

NARRATIVE: CASE EVENT DATE: 20011101
